FAERS Safety Report 7443844-4 (Version None)
Quarter: 2011Q2

REPORT INFORMATION
  Report Type: 
  Country: None (occurrence: None)
  Receive Date: 20110428
  Receipt Date: 20090421
  Transmission Date: 20111010
  Serious: Yes (Hospitalization, Other)
  Sender: FDA-Public Use
  Company Number: DE-GENENTECH-317652

PATIENT
  Age: 86 Year
  Sex: Female

DRUGS (1)
  1. LUCENTIS [Suspect]
     Indication: MACULAR DEGENERATION
     Dosage: UNK
     Route: 031
     Dates: start: 20080926

REACTIONS (12)
  - VISUAL ACUITY REDUCED [None]
  - OPTIC NERVE DISORDER [None]
  - BLINDNESS [None]
  - PELVIC FRACTURE [None]
  - DRUG INEFFECTIVE [None]
  - SKIN ULCER [None]
  - DEPRESSION [None]
  - CARDIAC DISORDER [None]
  - VISUAL IMPAIRMENT [None]
  - FALL [None]
  - OPEN WOUND [None]
  - BONE PAIN [None]
